FAERS Safety Report 8369468-2 (Version None)
Quarter: 2012Q2

REPORT INFORMATION
  Report Type: 
  Country: None (occurrence: None)
  Receive Date: 20120518
  Receipt Date: 20120514
  Transmission Date: 20120825
  Serious: Yes (Hospitalization)
  Sender: FDA-Public Use
  Company Number: AT-PFIZER INC-2012116483

PATIENT
  Age: 82 Year
  Sex: Male
  Weight: 95 kg

DRUGS (8)
  1. NEURONTIN [Concomitant]
     Dosage: 300 MG, UNK
     Route: 048
     Dates: start: 20111130, end: 20111202
  2. ASPIRIN [Concomitant]
     Dosage: 80 MG, UNK
     Route: 048
     Dates: start: 20060101
  3. LIPSIN [Concomitant]
     Dosage: 250 MG, UNK
     Route: 048
     Dates: start: 20080101
  4. GLUCOPHAGE [Concomitant]
     Dosage: 500 MG, UNK
     Route: 048
     Dates: start: 20100101
  5. DOMINAL FORTE [Suspect]
     Dosage: 80 MG, 1X/DAY
     Route: 048
     Dates: start: 20110101
  6. NEXIUM [Concomitant]
     Dosage: 20 MG, UNK
     Route: 048
     Dates: start: 20110101
  7. EFFEXOR XR [Suspect]
     Dosage: 150 MG, 1X/DAY
     Route: 048
     Dates: start: 20110101
  8. LYRICA [Suspect]
     Dosage: 75 MG, 1X/DAY
     Route: 048
     Dates: start: 20111202, end: 20111202

REACTIONS (3)
  - HALLUCINATION, VISUAL [None]
  - MYOCLONUS [None]
  - SUBSTANCE-INDUCED PSYCHOTIC DISORDER [None]
